FAERS Safety Report 19682165 (Version 7)
Quarter: 2021Q3

REPORT INFORMATION
  Report Type: Report from Study
  Country: ES (occurrence: ES)
  Receive Date: 20210810
  Receipt Date: 20210915
  Transmission Date: 20211014
  Serious: Yes (Hospitalization)
  Sender: FDA-Public Use
  Company Number: ES-EISAI MEDICAL RESEARCH-EC-2021-097486

PATIENT
  Age: 50 Year
  Sex: Male
  Weight: 74 kg

DRUGS (7)
  1. LENVATINIB [Suspect]
     Active Substance: LENVATINIB
     Indication: RENAL CELL CARCINOMA
     Route: 048
     Dates: start: 20210714, end: 20210726
  2. LENVATINIB [Suspect]
     Active Substance: LENVATINIB
     Route: 048
     Dates: start: 20210826
  3. MK?4280 [Suspect]
     Active Substance: FAVEZELIMAB
     Indication: RENAL CELL CARCINOMA
     Dosage: 800MG/200MG
     Route: 041
     Dates: start: 20210714, end: 20210714
  4. PEMBROLIZUMAB. [Suspect]
     Active Substance: PEMBROLIZUMAB
     Dosage: 800MG/200MG
     Route: 041
     Dates: start: 20210826
  5. HYDROCHLOROTHIAZIDE. [Concomitant]
     Active Substance: HYDROCHLOROTHIAZIDE
     Dates: start: 202106, end: 20210729
  6. MANIDIPINE HYDROCHLORIDE [Concomitant]
     Active Substance: MANIDIPINE HYDROCHLORIDE
     Dates: start: 202106
  7. ENALAPRIL [Concomitant]
     Active Substance: ENALAPRIL
     Dates: start: 202106, end: 20210629

REACTIONS (1)
  - Pancreatitis [Recovering/Resolving]

NARRATIVE: CASE EVENT DATE: 20210726
